FAERS Safety Report 7185027-1 (Version None)
Quarter: 2010Q4

REPORT INFORMATION
  Report Type: 
  Country: None (occurrence: None)
  Receive Date: 20101222
  Receipt Date: 20101214
  Transmission Date: 20110411
  Serious: Yes (Hospitalization)
  Sender: FDA-Public Use
  Company Number: PHHO2010FR18969

PATIENT
  Sex: Male
  Weight: 63 kg

DRUGS (14)
  1. NEORAL [Interacting]
     Indication: RENAL TRANSPLANT
     Dosage: UNK
     Route: 048
     Dates: start: 20101109, end: 20101201
  2. CERTICAN [Suspect]
     Indication: RENAL TRANSPLANT
     Dosage: 1.5 MG
     Route: 048
     Dates: start: 20101201, end: 20101206
  3. CERTICAN [Suspect]
     Dosage: 0.75 MG
     Route: 048
     Dates: start: 20101207
  4. COLCHIMAX [Interacting]
     Indication: AMYLOIDOSIS
     Dosage: UNK
     Route: 048
     Dates: start: 20101111, end: 20101206
  5. CELL CEPT [Concomitant]
     Indication: RENAL TRANSPLANT
     Dosage: 3 G
     Route: 048
     Dates: start: 20101108, end: 20101202
  6. CELL CEPT [Concomitant]
     Dosage: 1.5 G
     Route: 048
     Dates: start: 20101202
  7. SOLUPRED [Concomitant]
     Indication: RENAL TRANSPLANT
     Dosage: 70 MG
     Route: 048
     Dates: start: 20101109, end: 20101206
  8. SOLUPRED [Concomitant]
     Dosage: 10 MG
     Route: 048
     Dates: start: 20101206
  9. PROGRAF [Concomitant]
  10. BACTRIM [Concomitant]
  11. SPECIAFOLDINE [Concomitant]
  12. MOTILIUM [Concomitant]
  13. DEBRIDAT [Concomitant]
  14. SMECTA [Concomitant]

REACTIONS (2)
  - DRUG INTERACTION [None]
  - RHABDOMYOLYSIS [None]
